FAERS Safety Report 6356311-6 (Version None)
Quarter: 2009Q3

REPORT INFORMATION
  Report Type: 
  Country: None (occurrence: None)
  Receive Date: 20090914
  Receipt Date: 20090914
  Transmission Date: 20100115
  Serious: Yes (Other)
  Sender: FDA-Public Use
  Company Number: None

PATIENT
  Age: 29 Year
  Sex: Female
  Weight: 83.9154 kg

DRUGS (1)
  1. DEXTROAMPHETAMINE AND AMPHETAMINE SALTS [Suspect]
     Indication: NARCOLEPSY
     Dosage: 2 TABS -40MG- TWICE DAILY PO
     Route: 048
     Dates: start: 20090720, end: 20090820

REACTIONS (10)
  - ABDOMINAL PAIN UPPER [None]
  - DISTURBANCE IN ATTENTION [None]
  - DIZZINESS [None]
  - DYSKINESIA [None]
  - HEADACHE [None]
  - HYPERHIDROSIS [None]
  - INSOMNIA [None]
  - PRODUCT QUALITY ISSUE [None]
  - RESTLESSNESS [None]
  - VOMITING [None]
